FAERS Safety Report 9072645 (Version 2)
Quarter: 2013Q4

REPORT INFORMATION
  Report Type: Report from Study
  Country: BR (occurrence: BR)
  Receive Date: 20130207
  Receipt Date: 20131009
  Transmission Date: 20140711
  Serious: Yes (Other)
  Sender: FDA-Public Use
  Company Number: BR-US-EMD SERONO, INC.-7191718

PATIENT
  Age: 29 Year
  Sex: Female

DRUGS (5)
  1. REBIF [Suspect]
     Indication: RELAPSING-REMITTING MULTIPLE SCLEROSIS
     Dates: start: 200608
  2. AMITRIPTYLINE [Concomitant]
     Indication: PRODUCT USED FOR UNKNOWN INDICATION
  3. DOXAZOSIN MESILATE [Concomitant]
     Indication: PRODUCT USED FOR UNKNOWN INDICATION
  4. PREDNISONE [Concomitant]
     Indication: PRODUCT USED FOR UNKNOWN INDICATION
  5. PIPEMIDIC ACID [Concomitant]
     Indication: PRODUCT USED FOR UNKNOWN INDICATION

REACTIONS (7)
  - Wound [Recovered/Resolved]
  - Injection site vesicles [Recovered/Resolved]
  - Injection site scar [Not Recovered/Not Resolved]
  - Purulent discharge [Recovered/Resolved]
  - Injection site infection [Recovered/Resolved with Sequelae]
  - Injection site erythema [Recovered/Resolved]
  - Wrong technique in drug usage process [Unknown]
